FAERS Safety Report 16071153 (Version 5)
Quarter: 2019Q3

REPORT INFORMATION
  Report Type: Spontaneous
  Country: US (occurrence: US)
  Receive Date: 20190314
  Receipt Date: 20190912
  Transmission Date: 20191004
  Serious: No
  Sender: FDA-Public Use
  Company Number: US-PFIZER INC-2019059740

PATIENT
  Age: 51 Year
  Sex: Male
  Weight: 104.31 kg

DRUGS (6)
  1. REVATIO [Suspect]
     Active Substance: SILDENAFIL CITRATE
     Indication: HEPATIC CIRRHOSIS
  2. REVATIO [Suspect]
     Active Substance: SILDENAFIL CITRATE
     Indication: VASODILATATION
     Dosage: 40 MG, 3X/DAY (3 TIMES A DAY, MORNING, NOON AND EVENING)
     Dates: start: 2016
  3. LASIX [Concomitant]
     Active Substance: FUROSEMIDE
     Indication: FLUID RETENTION
     Dosage: UNK (TAKE ONE IN THE MORNING 40 MG AND THEN TAKE 20 MG IN THE EVENING)
     Dates: start: 201601
  4. REVATIO [Suspect]
     Active Substance: SILDENAFIL CITRATE
     Indication: PULMONARY ARTERIAL HYPERTENSION
     Dosage: 120 MG, DAILY
     Dates: start: 2015
  5. GENERLAC [Concomitant]
     Active Substance: LACTULOSE
     Dosage: UNK
  6. POTASSIUM [Concomitant]
     Active Substance: POTASSIUM
     Indication: BLOOD POTASSIUM ABNORMAL
     Dosage: 1 DF, 1X/DAY
     Dates: start: 2016

REACTIONS (3)
  - Memory impairment [Not Recovered/Not Resolved]
  - Overdose [Unknown]
  - Confusional state [Not Recovered/Not Resolved]

NARRATIVE: CASE EVENT DATE: 2015
